FAERS Safety Report 5226358-1 (Version None)
Quarter: 2007Q1

REPORT INFORMATION
  Report Type: 
  Country: None (occurrence: None)
  Receive Date: 20070201
  Receipt Date: 20070123
  Transmission Date: 20070707
  Serious: Yes (Death, Life-Threatening, Hospitalization)
  Sender: FDA-Public Use
  Company Number: FRWYE284323JAN07

PATIENT
  Age: 61 Year
  Sex: Male

DRUGS (9)
  1. EFFEXOR [Suspect]
     Dosage: OVERDOSE AMOUNT: UNSPEC.
     Route: 048
     Dates: start: 20061010, end: 20061010
  2. PAROXETINE HCL [Suspect]
     Dosage: OVERDOSE AMOUNT: UNSPEC.
     Route: 048
     Dates: start: 20061010, end: 20061010
  3. MITOTANE [Suspect]
     Dosage: OVERDOSE AMOUNT: UNSPEC.
     Route: 048
     Dates: start: 20061010, end: 20061010
  4. FLUDROCORTISONE [Concomitant]
     Dosage: UNKNOWN
  5. DAFALGAN [Concomitant]
     Dosage: UNKNOWN
     Route: 048
  6. HEXAQUINE [Concomitant]
     Dosage: UNKNOWN
  7. HYDROCORTISONE [Concomitant]
     Dosage: UNKNOWN
  8. TEMESTA [Suspect]
     Dosage: OVERDOSE AMOUNT: UNSPEC.
     Route: 048
     Dates: start: 20061010, end: 20061010
  9. BROMAZEPAM [Suspect]
     Dosage: OVERDOSE AMOUNT: UNSPEC.
     Route: 048
     Dates: start: 20061010, end: 20061010

REACTIONS (15)
  - BACTERIAL INFECTION [None]
  - CARDIAC ARREST [None]
  - COMA [None]
  - COMPLETED SUICIDE [None]
  - HAEMORRHAGIC ANAEMIA [None]
  - HYPOXIA [None]
  - INCREASED BRONCHIAL SECRETION [None]
  - INTENTIONAL OVERDOSE [None]
  - LIVEDO RETICULARIS [None]
  - LUNG CONSOLIDATION [None]
  - POST PROCEDURAL HAEMORRHAGE [None]
  - PROCEDURAL COMPLICATION [None]
  - PYOTHORAX [None]
  - RENAL FAILURE [None]
  - SEPTIC SHOCK [None]
